FAERS Safety Report 10220657 (Version 1)
Quarter: 2014Q2

REPORT INFORMATION
  Report Type: Spontaneous
  Country: JP (occurrence: JP)
  Receive Date: 20140606
  Receipt Date: 20140606
  Transmission Date: 20141212
  Serious: Yes (Death)
  Sender: FDA-Public Use
  Company Number: JP-ROCHE-1413999

PATIENT
  Age: 62 Year
  Sex: Male

DRUGS (9)
  1. RITUXIMAB [Suspect]
     Indication: DIFFUSE LARGE B-CELL LYMPHOMA
     Route: 065
  2. ETOPOSIDE [Concomitant]
  3. METHYLPREDNISOLONE [Concomitant]
  4. CYTARABINE [Concomitant]
  5. CISPLATIN [Concomitant]
  6. PIRARUBICIN HYDROCHLORIDE [Concomitant]
  7. CYCLOPHOSPHAMIDE [Concomitant]
  8. VINCRISTINE SULFATE [Concomitant]
  9. PREDNISOLONE [Concomitant]

REACTIONS (1)
  - Myelodysplastic syndrome [Fatal]
